FAERS Safety Report 7547722-1 (Version None)
Quarter: 2011Q2

REPORT INFORMATION
  Report Type: 
  Country: None (occurrence: None)
  Receive Date: 20110614
  Receipt Date: 20110504
  Transmission Date: 20111010
  Serious: No
  Sender: FDA-Public Use
  Company Number: US-BAYER-2011-040093

PATIENT
  Age: 67 Year
  Sex: Female
  Weight: 54 kg

DRUGS (1)
  1. ALEVE (CAPLET) [Suspect]
     Indication: ARTHRITIS
     Dosage: 440 MG, BID, BOTTLE COUNT 100S
     Route: 048
     Dates: start: 20110201, end: 20110504

REACTIONS (2)
  - PERIORBITAL HAEMATOMA [None]
  - EYELID OEDEMA [None]
